FAERS Safety Report 17927809 (Version 1)
Quarter: 2020Q2

REPORT INFORMATION
  Report Type: Spontaneous
  Country: US (occurrence: US)
  Receive Date: 20200622
  Receipt Date: 20200622
  Transmission Date: 20200714
  Serious: Yes (Hospitalization)
  Sender: FDA-Public Use
  Company Number: None

PATIENT
  Age: 25 Year
  Sex: Male
  Weight: 61.72 kg

DRUGS (1)
  1. ARIPIPRAZOLE (ARIPIPRAZOLE 400MG/KIT INJ SUSP,SA [Suspect]
     Active Substance: ARIPIPRAZOLE
     Indication: SCHIZOAFFECTIVE DISORDER
     Route: 058
     Dates: start: 20190905, end: 20191113

REACTIONS (2)
  - Product substitution issue [None]
  - Hallucination, auditory [None]

NARRATIVE: CASE EVENT DATE: 20191106
